FAERS Safety Report 7803248-9 (Version None)
Quarter: 2011Q4

REPORT INFORMATION
  Report Type: 
  Country: None (occurrence: None)
  Receive Date: 20111007
  Receipt Date: 20111005
  Transmission Date: 20120403
  Serious: Yes (Life-Threatening, Other)
  Sender: FDA-Public Use
  Company Number: JP-ABBOTT-11P-087-0859740-00

PATIENT
  Sex: Male
  Weight: 47 kg

DRUGS (15)
  1. SEVOFLURANE [Suspect]
     Dosage: 1.5%/VOL
     Dates: start: 20110428, end: 20110428
  2. REMIFENTANIL [Concomitant]
     Indication: INDUCTION AND MAINTENANCE OF ANAESTHESIA
  3. NITROUS OXIDE [Concomitant]
     Indication: PRODUCT USED FOR UNKNOWN INDICATION
  4. PROPOFOL [Concomitant]
     Indication: SURGERY
  5. SEVOFLURANE [Suspect]
     Dosage: 1.2%/VOL
     Dates: start: 20110428, end: 20110428
  6. REMIFENTANIL HYDROCHLORIDE [Suspect]
     Dates: start: 20110428, end: 20110428
  7. PROPOFOL [Concomitant]
     Indication: INDUCTION OF ANAESTHESIA
     Route: 042
     Dates: start: 20110428, end: 20110428
  8. OXYGEN [Concomitant]
     Indication: MAINTENANCE OF ANAESTHESIA
  9. NICORANDIL [Concomitant]
     Indication: PROPHYLAXIS
     Dosage: 4 MG/HR
     Route: 042
     Dates: start: 20110428, end: 20110430
  10. SEVOFLURANE [Suspect]
     Indication: MAINTENANCE OF ANAESTHESIA
     Dosage: 2.0%/VOL
     Route: 055
     Dates: start: 20110428, end: 20110428
  11. EPHEDRINE HYDROCHLORIDE [Suspect]
     Indication: BLOOD PRESSURE DECREASED
     Route: 042
     Dates: start: 20110428, end: 20110428
  12. NICORANDIL [Concomitant]
     Indication: ARTERIOSPASM CORONARY
  13. REMIFENTANIL HYDROCHLORIDE [Suspect]
     Indication: SURGERY
     Route: 042
     Dates: start: 20110428, end: 20110428
  14. REMIFENTANIL HYDROCHLORIDE [Suspect]
     Dates: start: 20110428, end: 20110428
  15. ROCURONIUM BROMIDE [Concomitant]
     Indication: INDUCTION OF ANAESTHESIA
     Route: 042
     Dates: start: 20110428, end: 20110428

REACTIONS (1)
  - VENTRICULAR FIBRILLATION [None]
